FAERS Safety Report 6287417-8 (Version None)
Quarter: 2009Q3

REPORT INFORMATION
  Report Type: 
  Country: None (occurrence: None)
  Receive Date: 20090727
  Receipt Date: 20090714
  Transmission Date: 20100115
  Serious: Yes (Other)
  Sender: FDA-Public Use
  Company Number: B0573691A

PATIENT
  Sex: Female

DRUGS (2)
  1. WELLBUTRIN XL [Suspect]
     Indication: DEPRESSION
     Dosage: 150 MG / ORAL
     Route: 048
     Dates: start: 20090427, end: 20090505
  2. LORAZEPAM [Concomitant]

REACTIONS (1)
  - MIGRAINE WITH AURA [None]
